FAERS Safety Report 13185307 (Version 3)
Quarter: 2017Q2

REPORT INFORMATION
  Report Type: Spontaneous
  Country: FR (occurrence: FR)
  Receive Date: 20170203
  Receipt Date: 20170619
  Transmission Date: 20170830
  Serious: Yes (Other)
  Sender: FDA-Public Use
  Company Number: FR-SA-2017SA014653

PATIENT
  Sex: Male

DRUGS (3)
  1. TOUJEO [Suspect]
     Active Substance: INSULIN GLARGINE
     Route: 051
  2. TOUJEO [Suspect]
     Active Substance: INSULIN GLARGINE
     Route: 051
  3. SOLOSTAR [Suspect]
     Active Substance: DEVICE

REACTIONS (3)
  - Hypoglycaemia [Unknown]
  - Ketosis [Recovered/Resolved]
  - Drug administered in wrong device [Unknown]

NARRATIVE: CASE EVENT DATE: 2017
